FAERS Safety Report 7725816-5 (Version None)
Quarter: 2011Q3

REPORT INFORMATION
  Report Type: 
  Country: None (occurrence: None)
  Receive Date: 20110902
  Receipt Date: 20110825
  Transmission Date: 20111222
  Serious: Yes (Death, Hospitalization, Other)
  Sender: FDA-Public Use
  Company Number: US-AMGEN-USASP2011039322

PATIENT
  Age: 79 Year
  Sex: Male
  Weight: 94.331 kg

DRUGS (8)
  1. PRAVASTATIN [Concomitant]
  2. ISOSORBIDE MONONITRATE [Concomitant]
  3. GLIPIZIDE [Concomitant]
  4. XGEVA [Suspect]
     Indication: METASTASES TO BONE
     Dosage: 120 MG, UNK
     Dates: start: 20110606, end: 20110606
  5. HYDROCHLOROTHIAZIDE [Concomitant]
  6. FLOMAX [Concomitant]
  7. METOPROLOL [Concomitant]
  8. COUMADIN [Concomitant]

REACTIONS (7)
  - INTERNATIONAL NORMALISED RATIO INCREASED [None]
  - EPISTAXIS [None]
  - METASTASES TO LIVER [None]
  - TOXICITY TO VARIOUS AGENTS [None]
  - SEPTIC SHOCK [None]
  - RESPIRATORY FAILURE [None]
  - LUNG NEOPLASM [None]
